FAERS Safety Report 12500097 (Version 2)
Quarter: 2016Q4

REPORT INFORMATION
  Report Type: Spontaneous
  Country: US (occurrence: US)
  Receive Date: 20160627
  Receipt Date: 20161019
  Transmission Date: 20170207
  Serious: No
  Sender: FDA-Public Use
  Company Number: US-GLAXOSMITHKLINE-CHPA2015US011509

PATIENT
  Sex: Female

DRUGS (1)
  1. PREVACID 24 HR [Suspect]
     Active Substance: LANSOPRAZOLE
     Indication: IRRITABLE BOWEL SYNDROME
     Dosage: 15 MG, QD
     Route: 048

REACTIONS (3)
  - Dyspepsia [Unknown]
  - Off label use [Unknown]
  - Drug ineffective for unapproved indication [Unknown]
